FAERS Safety Report 20319188 (Version 1)
Quarter: 2022Q1

REPORT INFORMATION
  Report Type: Spontaneous
  Country: US (occurrence: US)
  Receive Date: 20220110
  Receipt Date: 20220110
  Transmission Date: 20220423
  Serious: No
  Sender: FDA-Public Use
  Company Number: US-JNJFOC-20220102562

PATIENT
  Age: 84 Year

DRUGS (1)
  1. ZYRTEC [Suspect]
     Active Substance: CETIRIZINE HYDROCHLORIDE
     Indication: Product used for unknown indication
     Dosage: 2 TABLETS ONCE
     Route: 065
     Dates: start: 20220103

REACTIONS (2)
  - Overdose [Unknown]
  - Product label issue [Unknown]

NARRATIVE: CASE EVENT DATE: 20220103
